FAERS Safety Report 5494109-1 (Version None)
Quarter: 2007Q4

REPORT INFORMATION
  Report Type: 
  Country: None (occurrence: None)
  Receive Date: 20071022
  Receipt Date: 20071011
  Transmission Date: 20080405
  Serious: Yes (Hospitalization)
  Sender: FDA-Public Use
  Company Number: VNL_00800_2007

PATIENT
  Sex: Male
  Weight: 81.1939 kg

DRUGS (8)
  1. APOKYN [Suspect]
     Indication: PARKINSON'S DISEASE
     Dosage: 0.2 ML BID SUBCUTANEOUS
     Route: 058
     Dates: start: 20070801
  2. APOKYN [Suspect]
  3. DEPAKOTE [Concomitant]
  4. STALEVO 100 [Concomitant]
  5. LIPITOR [Concomitant]
  6. PROSCAR [Concomitant]
  7. LEXAPRO [Concomitant]
  8. FLOMAX [Concomitant]

REACTIONS (11)
  - ANAEMIA [None]
  - ANKLE FRACTURE [None]
  - DISTURBANCE IN ATTENTION [None]
  - FALL [None]
  - GAIT DISTURBANCE [None]
  - HAEMATOCHEZIA [None]
  - HEAD INJURY [None]
  - ILL-DEFINED DISORDER [None]
  - IMPAIRED HEALING [None]
  - MUSCULAR WEAKNESS [None]
  - PLATELET COUNT DECREASED [None]
